FAERS Safety Report 16272473 (Version 1)
Quarter: 2019Q2

REPORT INFORMATION
  Report Type: Spontaneous
  Country: GB (occurrence: GB)
  Receive Date: 20190506
  Receipt Date: 20190506
  Transmission Date: 20190711
  Serious: Yes (Hospitalization)
  Sender: FDA-Public Use
  Company Number: GB-TEVA-2019-GB-1045286

PATIENT
  Age: 44 Year
  Sex: Female

DRUGS (1)
  1. NAPROXEN. [Suspect]
     Active Substance: NAPROXEN
     Dosage: 1000 MILLIGRAM DAILY;
     Route: 048
     Dates: start: 20150204, end: 20180727

REACTIONS (1)
  - Perforated ulcer [Recovering/Resolving]

NARRATIVE: CASE EVENT DATE: 20180817
